FAERS Safety Report 19327358 (Version 15)
Quarter: 2022Q2

REPORT INFORMATION
  Report Type: Spontaneous
  Country: US (occurrence: US)
  Receive Date: 20210528
  Receipt Date: 20220615
  Transmission Date: 20220721
  Serious: Yes (Hospitalization, Other)
  Sender: FDA-Public Use
  Company Number: US-GLAXOSMITHKLINE-US2021AMR114510

PATIENT

DRUGS (5)
  1. ZEJULA [Suspect]
     Active Substance: NIRAPARIB
     Indication: Ovarian cancer
     Dosage: 6 DF, QD, 300 MG
     Dates: start: 20210521
  2. ZEJULA [Suspect]
     Active Substance: NIRAPARIB
     Dosage: 300 MG, QD
     Dates: start: 20210523
  3. ZEJULA [Suspect]
     Active Substance: NIRAPARIB
     Dosage: 300 MG, QD
  4. ZEJULA [Suspect]
     Active Substance: NIRAPARIB
     Dosage: 200 MG, QD
  5. OMEPRAZOLE [Suspect]
     Active Substance: OMEPRAZOLE
     Indication: Gastrointestinal disorder
     Dosage: UNK

REACTIONS (25)
  - Small intestinal obstruction [Unknown]
  - Migraine [Not Recovered/Not Resolved]
  - Arthropathy [Unknown]
  - Vomiting [Unknown]
  - Somnolence [Unknown]
  - Abdominal discomfort [Not Recovered/Not Resolved]
  - Headache [Not Recovered/Not Resolved]
  - Nausea [Unknown]
  - Gastrointestinal disorder [Not Recovered/Not Resolved]
  - Musculoskeletal discomfort [Not Recovered/Not Resolved]
  - Constipation [Unknown]
  - Abdominal pain upper [Not Recovered/Not Resolved]
  - Gastrointestinal scarring [Unknown]
  - Photosensitivity reaction [Unknown]
  - Alopecia [Unknown]
  - Contusion [Unknown]
  - Ligament laxity [Unknown]
  - Myalgia [Unknown]
  - Joint dislocation [Recovering/Resolving]
  - Fatigue [Recovering/Resolving]
  - Ligament disorder [Unknown]
  - Arthralgia [Recovering/Resolving]
  - Product dose omission issue [Unknown]
  - Accidental overdose [Unknown]
  - Drug monitoring procedure not performed [Unknown]

NARRATIVE: CASE EVENT DATE: 20210627
